FAERS Safety Report 21741669 (Version 2)
Quarter: 2023Q4

REPORT INFORMATION
  Report Type: Spontaneous
  Country: GB (occurrence: GB)
  Receive Date: 20221216
  Receipt Date: 20231207
  Transmission Date: 20240109
  Serious: Yes (Other)
  Sender: FDA-Public Use
  Company Number: GB-JNJFOC-20221134653

PATIENT
  Age: 53 Year
  Sex: Male

DRUGS (76)
  1. HYDROCORTISONE SODIUM SUCCINATE [Suspect]
     Active Substance: HYDROCORTISONE SODIUM SUCCINATE
     Indication: Colitis ulcerative
     Dosage: 1 DF, 1X/DAY
     Route: 065
  2. SULFASALAZINE [Suspect]
     Active Substance: SULFASALAZINE
     Indication: Colitis ulcerative
     Dosage: 5 MG, 2X/DAY
  3. SULFASALAZINE [Suspect]
     Active Substance: SULFASALAZINE
     Dosage: UNK
     Route: 065
     Dates: start: 20160101
  4. SULFASALAZINE [Suspect]
     Active Substance: SULFASALAZINE
     Dosage: UNK
     Dates: start: 201709, end: 201709
  5. SULFASALAZINE [Suspect]
     Active Substance: SULFASALAZINE
     Dosage: UNK
     Dates: start: 2009, end: 2016
  6. ADALIMUMAB [Suspect]
     Active Substance: ADALIMUMAB\ISOPROPYL ALCOHOL
     Dosage: 5 MG/KG, CYCLIC, EVERY 8 WEEKS
     Route: 042
     Dates: start: 20171019
  7. ASACOL [Suspect]
     Active Substance: MESALAMINE
     Indication: Colitis ulcerative
     Dosage: 3G 1X/DAY
     Route: 065
     Dates: start: 20161001
  8. ASACOL [Suspect]
     Active Substance: MESALAMINE
     Dosage: 50 MG, 1X/DAY 6DOSAGE FORM
     Route: 065
     Dates: start: 20161001
  9. ASACOL [Suspect]
     Active Substance: MESALAMINE
     Dosage: 2.4G 1X/DAY
     Route: 065
     Dates: start: 201707
  10. ASACOL [Suspect]
     Active Substance: MESALAMINE
     Dosage: 3G 2X/DAY (EVERY 12 HOURS)
     Route: 065
     Dates: start: 20161001
  11. ASACOL [Suspect]
     Active Substance: MESALAMINE
     Dosage: 4.8 G, 1X/DAY
     Route: 065
  12. ASACOL [Suspect]
     Active Substance: MESALAMINE
     Dosage: 2.4G 1X/DAY
     Route: 065
     Dates: start: 20161001
  13. ASACOL [Suspect]
     Active Substance: MESALAMINE
     Dosage: 12 DF, 1X/DAY
     Route: 065
  14. ASPIRIN [Suspect]
     Active Substance: ASPIRIN
     Dosage: UNK
  15. BUDESONIDE [Suspect]
     Active Substance: BUDESONIDE
     Indication: Colitis ulcerative
     Dosage: 8 DF, CYCLIC (1 EVERY 8 WEEKS)
     Route: 048
     Dates: start: 200707
  16. BUDESONIDE [Suspect]
     Active Substance: BUDESONIDE
     Dosage: 1 DF, 1X/DAY
     Route: 048
  17. CANDESARTAN [Suspect]
     Active Substance: CANDESARTAN
     Dosage: UNK
  18. CORTIFOAM [Suspect]
     Active Substance: HYDROCORTISONE ACETATE
     Indication: Colitis ulcerative
     Dosage: 1 DF, 1X/DAY
     Route: 048
     Dates: start: 201707
  19. CORTIFOAM [Suspect]
     Active Substance: HYDROCORTISONE ACETATE
     Dosage: EVERY 8 WEEKS
  20. BUDESONIDE [Suspect]
     Active Substance: BUDESONIDE
     Dosage: 8 DF, EVERY 8 WEEKS
     Route: 048
     Dates: start: 200707
  21. BUDESONIDE [Suspect]
     Active Substance: BUDESONIDE
     Dosage: 1 DF, 1X/DAY
  22. ENTYVIO [Suspect]
     Active Substance: VEDOLIZUMAB
     Indication: Colitis ulcerative
     Dosage: 50 MG
     Route: 048
     Dates: start: 2017
  23. ENTYVIO [Suspect]
     Active Substance: VEDOLIZUMAB
     Indication: Deep vein thrombosis
     Dosage: UNK, CYCLIC (1 TIME EVERY 8 WEEKS)
     Route: 048
     Dates: start: 201807
  24. ENTYVIO [Suspect]
     Active Substance: VEDOLIZUMAB
     Dosage: 50 MG
     Route: 048
  25. ENTYVIO [Suspect]
     Active Substance: VEDOLIZUMAB
     Dosage: UNK
     Dates: start: 2009
  26. HYDROCORTISONE ACETATE [Suspect]
     Active Substance: HYDROCORTISONE ACETATE
     Indication: Colitis ulcerative
     Dosage: UNK UNK, 1X/DAY
     Route: 065
     Dates: start: 201807
  27. HYDROCORTISONE ACETATE [Suspect]
     Active Substance: HYDROCORTISONE ACETATE
     Dosage: UNK UNK, 1X/DAY
     Route: 065
     Dates: start: 20160101, end: 20161001
  28. HYDROCORTISONE ACETATE [Suspect]
     Active Substance: HYDROCORTISONE ACETATE
     Dosage: 3 DF, 2X/DAY
  29. HYDROCORTISONE ACETATE [Suspect]
     Active Substance: HYDROCORTISONE ACETATE
     Dosage: EVERY 8 WEEKS
  30. MESALAMINE [Suspect]
     Active Substance: MESALAMINE
     Indication: Colitis ulcerative
     Dosage: 4.8 G, 1X/DAY 6 DOSAGE FORM
     Route: 065
     Dates: start: 20160101
  31. MESALAMINE [Suspect]
     Active Substance: MESALAMINE
     Dosage: UNK
     Route: 065
     Dates: start: 20160101, end: 20170901
  32. MESALAMINE [Suspect]
     Active Substance: MESALAMINE
     Dosage: 4.8G 2X/DAY
     Route: 065
     Dates: start: 201610
  33. MESALAMINE [Suspect]
     Active Substance: MESALAMINE
     Dosage: 50 MG
     Route: 065
     Dates: start: 20160101, end: 20170901
  34. MESALAMINE [Suspect]
     Active Substance: MESALAMINE
     Dosage: 50 MG
     Route: 065
     Dates: start: 20160101, end: 20161001
  35. MESALAMINE [Suspect]
     Active Substance: MESALAMINE
     Dosage: 2.4 G
     Route: 065
     Dates: start: 20161001
  36. MESALAMINE [Suspect]
     Active Substance: MESALAMINE
     Dosage: 4.8G 1X/DAY
     Route: 065
     Dates: start: 20160101, end: 201709
  37. MESALAMINE [Suspect]
     Active Substance: MESALAMINE
     Dosage: UNK
     Route: 065
     Dates: start: 201709, end: 201709
  38. MESALAMINE [Suspect]
     Active Substance: MESALAMINE
     Indication: Colitis ulcerative
     Dosage: UNK
     Route: 042
     Dates: start: 2017, end: 2017
  39. MESALAMINE [Suspect]
     Active Substance: MESALAMINE
     Dosage: UNK
     Route: 048
     Dates: start: 20160101
  40. MESALAMINE [Suspect]
     Active Substance: MESALAMINE
     Dosage: 4.8 G, 1X/DAY
  41. MESALAMINE [Suspect]
     Active Substance: MESALAMINE
     Dosage: 50 MG, 1X/DAY
     Dates: start: 20161001
  42. MESALAMINE [Suspect]
     Active Substance: MESALAMINE
     Dosage: 3 G, 1X/DAY
     Dates: start: 20161001
  43. MESALAMINE [Suspect]
     Active Substance: MESALAMINE
     Dosage: 3 G, 2X/DAY
  44. MESALAMINE [Suspect]
     Active Substance: MESALAMINE
     Dosage: 2.4 G, 1X/DAY
  45. MESALAMINE [Suspect]
     Active Substance: MESALAMINE
     Dosage: 12 DF, 1X/DAY
     Dates: start: 201707
  46. PARA-AMINOSALICYLIC ACID [Suspect]
     Active Substance: AMINOSALICYLIC ACID
     Indication: Colitis ulcerative
     Dosage: UNK
     Route: 065
  47. PREDNISONE [Suspect]
     Active Substance: PREDNISONE
     Indication: Colitis ulcerative
     Dosage: UNK
     Route: 042
     Dates: start: 2017, end: 2017
  48. PREDNISONE [Suspect]
     Active Substance: PREDNISONE
     Dosage: 50 MG
     Route: 065
     Dates: start: 2009, end: 2009
  49. PREDNISONE [Suspect]
     Active Substance: PREDNISONE
     Dosage: 40 MG, 1X/DAY
  50. REMICADE [Suspect]
     Active Substance: INFLIXIMAB
     Indication: Crohn^s disease
     Dosage: 5MG/KG EVERY 8 WEEKS
     Route: 041
     Dates: start: 20170101, end: 20170901
  51. REMICADE [Suspect]
     Active Substance: INFLIXIMAB
     Indication: Colitis ulcerative
     Dosage: UNK
     Route: 041
     Dates: start: 201709
  52. REMICADE [Suspect]
     Active Substance: INFLIXIMAB
     Dosage: EVERY 2 WEEKS
     Route: 041
  53. REMICADE [Suspect]
     Active Substance: INFLIXIMAB
     Dosage: 7 MG/KG, EVERY 8 WEEKS
     Route: 041
  54. REMICADE [Suspect]
     Active Substance: INFLIXIMAB
     Dosage: EVERY 6 WEEKS
     Route: 041
  55. REMICADE [Suspect]
     Active Substance: INFLIXIMAB
     Dosage: UNK
  56. VEDOLIZUMAB [Suspect]
     Active Substance: VEDOLIZUMAB
     Indication: Deep vein thrombosis
     Dosage: UNK
     Route: 065
     Dates: start: 2009
  57. VEDOLIZUMAB [Suspect]
     Active Substance: VEDOLIZUMAB
     Indication: Colitis ulcerative
     Dosage: UNK
     Route: 042
  58. VEDOLIZUMAB [Suspect]
     Active Substance: VEDOLIZUMAB
     Dosage: UNK, 1X/DAY
  59. WARFARIN [Suspect]
     Active Substance: WARFARIN
     Indication: Colitis ulcerative
     Dosage: 1 TIME EVERY 8 WEEKS
     Route: 048
     Dates: start: 201707
  60. WARFARIN [Suspect]
     Active Substance: WARFARIN
     Indication: Deep vein thrombosis
     Dosage: UNK
     Route: 065
  61. WARFARIN SODIUM [Suspect]
     Active Substance: WARFARIN SODIUM
     Indication: Crohn^s disease
     Dosage: UNK
     Route: 048
     Dates: start: 201707
  62. WARFARIN SODIUM [Suspect]
     Active Substance: WARFARIN SODIUM
     Indication: Deep vein thrombosis
     Dosage: UNK
     Route: 065
     Dates: start: 2009, end: 2009
  63. WARFARIN SODIUM [Suspect]
     Active Substance: WARFARIN SODIUM
     Dosage: UNK
     Route: 065
     Dates: end: 2019
  64. ALBENDAZOLE [Concomitant]
     Active Substance: ALBENDAZOLE
     Indication: Colitis ulcerative
     Dosage: 8 DF
     Route: 048
     Dates: start: 20090101, end: 20160101
  65. ALBENDAZOLE [Concomitant]
     Active Substance: ALBENDAZOLE
     Indication: Crohn^s disease
     Dosage: 8 DF
     Route: 048
  66. ALBENDAZOLE [Concomitant]
     Active Substance: ALBENDAZOLE
     Indication: Deep vein thrombosis
     Dosage: 231
  67. HUMIRA [Concomitant]
     Active Substance: ADALIMUMAB
     Indication: Crohn^s disease
     Dosage: 8 DF
     Dates: start: 201707
  68. HUMIRA [Concomitant]
     Active Substance: ADALIMUMAB
     Indication: Deep vein thrombosis
     Dosage: UNK
     Dates: start: 201709, end: 201709
  69. HUMIRA [Concomitant]
     Active Substance: ADALIMUMAB
     Indication: Colitis ulcerative
     Dosage: EVERY 8 WEEKS
  70. HYDROCORTISONE [Concomitant]
     Active Substance: HYDROCORTISONE
     Indication: Colitis ulcerative
     Dosage: 1 DF, 1X/DAY
     Route: 048
  71. HYDROCORTISONE [Concomitant]
     Active Substance: HYDROCORTISONE
     Dosage: EVERY 6 WEEKS
  72. HYDROCORTISONE [Concomitant]
     Active Substance: HYDROCORTISONE
     Dosage: EVERY 8 WEEKS
  73. METHOTREXATE [Concomitant]
     Active Substance: METHOTREXATE
     Indication: Colitis ulcerative
     Dosage: UNK
     Dates: start: 201709, end: 201709
  74. METHOTREXATE [Concomitant]
     Active Substance: METHOTREXATE
     Dosage: UNK
     Dates: start: 20090101, end: 20160101
  75. MESALAMINE [Concomitant]
     Active Substance: MESALAMINE
     Indication: Colitis ulcerative
     Dosage: UNK
     Route: 065
  76. XELJANZ [Concomitant]
     Active Substance: TOFACITINIB CITRATE
     Indication: Colitis ulcerative
     Dosage: 5MG 2X/DAY
     Route: 048

REACTIONS (15)
  - Impaired quality of life [Not Recovered/Not Resolved]
  - Weight decreased [Not Recovered/Not Resolved]
  - Rectal haemorrhage [Not Recovered/Not Resolved]
  - Stress [Not Recovered/Not Resolved]
  - Impaired work ability [Not Recovered/Not Resolved]
  - Loss of personal independence in daily activities [Not Recovered/Not Resolved]
  - Steroid dependence [Not Recovered/Not Resolved]
  - Bronchiectasis [Not Recovered/Not Resolved]
  - Haematochezia [Not Recovered/Not Resolved]
  - Deep vein thrombosis [Not Recovered/Not Resolved]
  - Colitis ulcerative [Not Recovered/Not Resolved]
  - Drug ineffective [Not Recovered/Not Resolved]
  - Condition aggravated [Not Recovered/Not Resolved]
  - Frequent bowel movements [Not Recovered/Not Resolved]
  - Rash [Not Recovered/Not Resolved]
